FAERS Safety Report 19019204 (Version 1)
Quarter: 2021Q1

REPORT INFORMATION
  Report Type: Report from Study
  Country: DE (occurrence: DE)
  Receive Date: 20210316
  Receipt Date: 20210316
  Transmission Date: 20210420
  Serious: Yes (Hospitalization, Other)
  Sender: FDA-Public Use
  Company Number: DE-INCYTE CORPORATION-2017IN007214

PATIENT

DRUGS (21)
  1. L?THYROXINE [LEVOTHYROXINE] [Concomitant]
     Active Substance: LEVOTHYROXINE
     Dosage: 100 UG, UNK
     Route: 048
     Dates: start: 20180428
  2. METOPROLOL [METOPROLOL TARTRATE] [Concomitant]
     Active Substance: METOPROLOL TARTRATE
     Indication: TACHYCARDIA
     Dosage: 150 MG, QD
     Route: 048
     Dates: start: 20170816
  3. DEKRISTOL [Concomitant]
     Active Substance: CHOLECALCIFEROL
     Indication: VITAMIN D DEFICIENCY
     Dosage: 20000 IU, BIW
     Route: 048
     Dates: start: 20161115
  4. DERMATOP [Concomitant]
     Active Substance: PREDNICARBATE
     Indication: RASH
     Dosage: UNK UNK, PRN
     Route: 061
     Dates: start: 20170504
  5. ZINC. [Concomitant]
     Active Substance: ZINC
     Indication: RASH
     Dosage: UNK UNK, PRN
     Route: 061
     Dates: start: 20170409, end: 201704
  6. FLUVASTATIN [Concomitant]
     Active Substance: FLUVASTATIN SODIUM
     Indication: HYPERLIPIDAEMIA
     Dosage: 40 MG, QD
     Route: 048
  7. PANTOZOL [Concomitant]
     Active Substance: PANTOPRAZOLE SODIUM
     Indication: PROPHYLAXIS
     Dosage: 20 MG, QD
     Route: 048
     Dates: start: 201709
  8. SPIRONOLACTONE. [Concomitant]
     Active Substance: SPIRONOLACTONE
     Indication: HYPERTENSION
     Dosage: UNK
     Route: 048
  9. ZOPICLON [Concomitant]
     Active Substance: ZOPICLONE
     Indication: SLEEP APNOEA SYNDROME
     Dosage: 7.5 MG, PRN
     Route: 048
  10. HCT [Concomitant]
     Active Substance: HYDROCHLOROTHIAZIDE
     Indication: HYPERTENSION
     Dosage: 12.5 MG, QD
     Route: 048
     Dates: start: 201708
  11. JAKAVI [Suspect]
     Active Substance: RUXOLITINIB
     Dosage: 10 MG, BID
     Route: 048
     Dates: start: 20180413
  12. L?THYROXINE [LEVOTHYROXINE] [Concomitant]
     Active Substance: LEVOTHYROXINE
     Indication: THYROIDECTOMY
     Dosage: 125/150 UG, QD (DAILY ALTERATION)
     Route: 048
     Dates: end: 20180427
  13. ALLOPURINOL W/BENZBROMARONE [Concomitant]
     Indication: HYPERURICAEMIA
     Dosage: 300 MG, QD
     Route: 048
     Dates: start: 20170518, end: 201708
  14. ALLOPURINOL W/BENZBROMARONE [Concomitant]
     Dosage: 100 MG, QD
     Route: 048
     Dates: start: 201708, end: 201709
  15. TAMSULOSIN [Concomitant]
     Active Substance: TAMSULOSIN
     Indication: BENIGN PROSTATIC HYPERPLASIA
     Dosage: 0.4 MG, QD
     Route: 048
     Dates: start: 201006
  16. NOVALGIN (METAMIZOLE SODIUM) [Concomitant]
     Active Substance: METAMIZOLE SODIUM
     Indication: PAIN PROPHYLAXIS
     Dosage: 30 DRP, PRN
     Route: 048
     Dates: start: 201709
  17. SPIRO [Concomitant]
     Indication: HYPERTENSION
     Dosage: UNK
     Route: 048
  18. ALLOPURINOL W/BENZBROMARONE [Concomitant]
     Dosage: 150 MG, QD
     Route: 048
     Dates: start: 201709
  19. METOBETA [Concomitant]
     Active Substance: METOPROLOL TARTRATE
     Indication: HYPERTENSION
     Dosage: 100 MG, QD
     Route: 048
     Dates: end: 20170815
  20. VALSARTAN. [Concomitant]
     Active Substance: VALSARTAN
     Indication: HYPERTENSION
     Dosage: 160 MG, QD
     Route: 048
  21. JAKAVI [Suspect]
     Active Substance: RUXOLITINIB
     Indication: POLYCYTHAEMIA VERA
     Dosage: 10 MG, QD
     Route: 048
     Dates: start: 20170720, end: 20180412

REACTIONS (10)
  - Basal cell carcinoma [Recovered/Resolved]
  - Upper respiratory tract infection [Recovered/Resolved]
  - Haematocrit increased [Recovered/Resolved]
  - Faecaloma [Recovered/Resolved]
  - Folate deficiency [Not Recovered/Not Resolved]
  - Peritonitis bacterial [Recovered/Resolved]
  - Hyperthyroidism [Recovered/Resolved]
  - Hypokalaemia [Recovered/Resolved]
  - Cardiac failure [Recovered/Resolved]
  - Weight decreased [Not Recovered/Not Resolved]

NARRATIVE: CASE EVENT DATE: 20170810
